FAERS Safety Report 5060545-0 (Version None)
Quarter: 2006Q3

REPORT INFORMATION
  Report Type: 
  Country: None (occurrence: None)
  Receive Date: 20060719
  Receipt Date: 20060719
  Transmission Date: 20061208
  Serious: Yes (Other)
  Sender: FDA-Public Use
  Company Number: None

PATIENT
  Age: 65 Year
  Sex: Female
  Weight: 56.6996 kg

DRUGS (4)
  1. AMIDRINE CAPSULES (MFR:  AMIDE PHARMACEUTICALS) [Suspect]
     Indication: HEADACHE
     Dosage: SEE SECTION  B #5     ORAL
     Route: 048
  2. ZOLOFT [Concomitant]
  3. EMPIRIN WITH CODEINE [Concomitant]
  4. CLONAZEPAM [Concomitant]

REACTIONS (5)
  - ANOREXIA [None]
  - ASTHENIA [None]
  - DRUG INEFFECTIVE [None]
  - SOMNOLENCE [None]
  - THERAPEUTIC RESPONSE UNEXPECTED WITH DRUG SUBSTITUTION [None]
